FAERS Safety Report 24951418 (Version 1)
Quarter: 2025Q1

REPORT INFORMATION
  Report Type: Report from Study
  Country: CA (occurrence: CA)
  Receive Date: 20250210
  Receipt Date: 20250210
  Transmission Date: 20250409
  Serious: Yes (Other)
  Sender: CSL BEHRING
  Company Number: CA-BEH-2025191125

PATIENT
  Age: 77 Year
  Sex: Male
  Weight: 78 kg

DRUGS (14)
  1. BERINERT [Suspect]
     Active Substance: HUMAN C1-ESTERASE INHIBITOR
     Indication: Hereditary angioedema
     Route: 042
     Dates: start: 20241222
  2. BERINERT [Suspect]
     Active Substance: HUMAN C1-ESTERASE INHIBITOR
     Indication: Hereditary angioedema
     Route: 042
     Dates: start: 20241222
  3. BERINERT [Suspect]
     Active Substance: HUMAN C1-ESTERASE INHIBITOR
     Indication: Angioedema
     Route: 065
     Dates: start: 20250113
  4. BERINERT [Suspect]
     Active Substance: HUMAN C1-ESTERASE INHIBITOR
     Indication: Angioedema
     Route: 065
     Dates: start: 20250113
  5. BERINERT [Suspect]
     Active Substance: HUMAN C1-ESTERASE INHIBITOR
     Indication: Off label use
  6. BERINERT [Suspect]
     Active Substance: HUMAN C1-ESTERASE INHIBITOR
     Indication: Off label use
  7. NIFEDIPINE [Concomitant]
     Active Substance: NIFEDIPINE
  8. SIMVASTATIN [Concomitant]
     Active Substance: SIMVASTATIN
  9. CETIRIZINE [Concomitant]
     Active Substance: CETIRIZINE HYDROCHLORIDE
  10. TYLENOL [Concomitant]
     Active Substance: ACETAMINOPHEN
  11. TYLENOL PM [Concomitant]
     Active Substance: ACETAMINOPHEN\DIPHENHYDRAMINE
  12. BENADRYL [Concomitant]
     Active Substance: DIPHENHYDRAMINE HYDROCHLORIDE
     Indication: Arthritis
  13. CLONAZEPAM [Concomitant]
     Active Substance: CLONAZEPAM
  14. MELATONIN [Concomitant]
     Active Substance: MELATONIN

REACTIONS (13)
  - Swollen tongue [Recovered/Resolved]
  - Eyelid oedema [Recovered/Resolved]
  - Unevaluable event [Recovering/Resolving]
  - Pain in extremity [Recovering/Resolving]
  - Pain in extremity [Recovering/Resolving]
  - Poor venous access [Unknown]
  - Vein disorder [Unknown]
  - Dehydration [Unknown]
  - Swelling face [Recovering/Resolving]
  - Therapeutic response unexpected [Recovering/Resolving]
  - Weight increased [Unknown]
  - Swelling [Unknown]
  - Off label use [Unknown]

NARRATIVE: CASE EVENT DATE: 20250101
